FAERS Safety Report 4299290-8 (Version None)
Quarter: 2004Q1

REPORT INFORMATION
  Report Type: 
  Country: None (occurrence: None)
  Receive Date: 20040217
  Receipt Date: 20040203
  Transmission Date: 20041129
  Serious: Yes (Hospitalization, Other)
  Sender: FDA-Public Use
  Company Number: 2004002059

PATIENT
  Age: 60 Year
  Sex: Female
  Weight: 59.8748 kg

DRUGS (22)
  1. DOXEPIN HCL [Suspect]
     Indication: PAIN
     Dosage: 300 MG (DAILY), ORAL
     Route: 048
  2. DOXEPIN HCL [Suspect]
     Indication: SLEEP DISORDER
     Dosage: 300 MG (DAILY), ORAL
     Route: 048
  3. NEURONTIN [Suspect]
     Indication: PAIN
     Dosage: 900 MG (DAILY), ORAL
     Route: 048
     Dates: start: 19990101, end: 20020701
  4. NEURONTIN [Suspect]
     Indication: SLEEP DISORDER
     Dosage: 900 MG (DAILY), ORAL
     Route: 048
     Dates: start: 19990101, end: 20020701
  5. PHENOBARBITAL TAB [Suspect]
     Indication: ILL-DEFINED DISORDER
     Dosage: 30 MG (BID), ORAL
     Route: 048
     Dates: start: 20000101
  6. LEVOTHYROXINE SODIUM [Concomitant]
  7. OMEPRAZOLE [Concomitant]
  8. VERAPAMIL HCL [Concomitant]
  9. TEMAZEPAM [Concomitant]
  10. ALL OTHER THERAPEUTIC PRODUCTS [Concomitant]
  11. ALL OTHER THERAPEUTIC PRODUCTS [Concomitant]
  12. BACLOFEN [Concomitant]
  13. CARISOPRODOL [Concomitant]
  14. PARAFON FORTE (CHLORZOXAZONE, PARACETAMOL) [Concomitant]
  15. HYDROXYZINE EMBONATE (HYDROXYZINE EMBONATE) [Concomitant]
  16. PROCHLORPERAZINE EDISYLATE (PROCHLORPERAZINE EDISYLATE) [Concomitant]
  17. SUMATRIPTAN SUCCINATE [Concomitant]
  18. DYAZIDE [Concomitant]
  19. PRAVASTATIN SODIUM [Concomitant]
  20. TEGASEROD (TEGASEROD) [Concomitant]
  21. PERCODAN (ACETYLSALICYLIC ACID, CAFFEINE, PHENACETIN, OXYCODONE HYDROC [Concomitant]
  22. VICODIN [Concomitant]

REACTIONS (24)
  - ABASIA [None]
  - ACCIDENTAL OVERDOSE [None]
  - COMA [None]
  - CONCUSSION [None]
  - DYSKINESIA [None]
  - ELECTROENCEPHALOGRAM ABNORMAL [None]
  - EPILEPSY [None]
  - FACIAL BONES FRACTURE [None]
  - FALL [None]
  - FATIGUE [None]
  - HEAD INJURY [None]
  - LIMB OPERATION [None]
  - MEMORY IMPAIRMENT [None]
  - MOBILITY DECREASED [None]
  - MYOCLONUS [None]
  - NECK PAIN [None]
  - OVERDOSE [None]
  - PAIN [None]
  - SCAR [None]
  - SHOULDER OPERATION [None]
  - SINUS DISORDER [None]
  - SINUSITIS [None]
  - SOMNOLENCE [None]
  - THORACIC VERTEBRAL FRACTURE [None]
